FAERS Safety Report 12382506 (Version 1)
Quarter: 2016Q2

REPORT INFORMATION
  Report Type: Report from Study
  Country: AU (occurrence: AU)
  Receive Date: 20160518
  Receipt Date: 20160518
  Transmission Date: 20160815
  Serious: Yes (Hospitalization, Other)
  Sender: FDA-Public Use
  Company Number: AU-REGENERON PHARMACEUTICALS, INC.-2016-17183

PATIENT

DRUGS (1)
  1. EYLEA [Suspect]
     Active Substance: AFLIBERCEPT
     Indication: NEOVASCULAR AGE-RELATED MACULAR DEGENERATION
     Dosage: UNK
     Route: 031
     Dates: start: 20130501

REACTIONS (4)
  - Drug ineffective [Not Recovered/Not Resolved]
  - Drug dose omission [Not Recovered/Not Resolved]
  - Gastrointestinal carcinoma [Recovered/Resolved]
  - Malaise [Recovered/Resolved]
